FAERS Safety Report 18481208 (Version 1)
Quarter: 2020Q4

REPORT INFORMATION
  Report Type: Report from Study
  Country: US (occurrence: US)
  Receive Date: 20201109
  Receipt Date: 20201109
  Transmission Date: 20210114
  Serious: Yes (Other)
  Sender: FDA-Public Use
  Company Number: US-EXELIXIS-XL18420034460

PATIENT

DRUGS (3)
  1. XL184 [Suspect]
     Active Substance: CABOZANTINIB
     Indication: BLADDER CANCER
     Dosage: 40 MG, QD
     Route: 048
     Dates: start: 20200720
  2. IPILIMUMAB [Suspect]
     Active Substance: IPILIMUMAB
     Indication: BLADDER CANCER
     Dosage: 1 MG/KG ON DAY 1
     Route: 042
     Dates: start: 20200720, end: 20200720
  3. NIVOLUMAB [Suspect]
     Active Substance: NIVOLUMAB
     Indication: BLADDER CANCER
     Dosage: 3 MG/KG ON DAY 1
     Route: 042
     Dates: start: 20200720, end: 20200720

REACTIONS (3)
  - Skin ulcer [Not Recovered/Not Resolved]
  - Haematuria [Not Recovered/Not Resolved]
  - Anaemia [Not Recovered/Not Resolved]

NARRATIVE: CASE EVENT DATE: 20201013
